FAERS Safety Report 25520326 (Version 1)
Quarter: 2025Q3

REPORT INFORMATION
  Report Type: Spontaneous
  Country: US (occurrence: US)
  Receive Date: 20250704
  Receipt Date: 20250704
  Transmission Date: 20251021
  Serious: No
  Sender: SANOFI AVENTIS
  Company Number: US-SA-2025SA189746

PATIENT
  Age: 48 Year
  Sex: Female

DRUGS (9)
  1. DUPIXENT [Suspect]
     Active Substance: DUPILUMAB
     Indication: Nasal polyps
     Route: 058
     Dates: start: 20241216
  2. PROGESTERONE [Concomitant]
     Active Substance: PROGESTERONE
  3. EPINEPHRINE [Concomitant]
     Active Substance: EPINEPHRINE
  4. MONTELUKAST [Concomitant]
     Active Substance: MONTELUKAST
  5. BUPROPION [Concomitant]
     Active Substance: BUPROPION
  6. SERTRALINE [Concomitant]
     Active Substance: SERTRALINE HYDROCHLORIDE
  7. BUDESONIDE [Concomitant]
     Active Substance: BUDESONIDE
  8. IBUPROFEN [Concomitant]
     Active Substance: IBUPROFEN
  9. MUCINEX [Concomitant]
     Active Substance: GUAIFENESIN

REACTIONS (1)
  - Anaemia [Unknown]

NARRATIVE: CASE EVENT DATE: 20250702
